FAERS Safety Report 11277011 (Version 1)
Quarter: 2015Q3

REPORT INFORMATION
  Report Type: Spontaneous
  Country: FR (occurrence: FR)
  Receive Date: 20150716
  Receipt Date: 20150716
  Transmission Date: 20151125
  Serious: Yes (Hospitalization, Other)
  Sender: FDA-Public Use
  Company Number: FR-ASTRAZENECA-2015SE67765

PATIENT
  Age: 77 Year
  Sex: Female

DRUGS (12)
  1. XEROQUEL [Suspect]
     Active Substance: QUETIAPINE FUMARATE
     Indication: DEPRESSION
     Route: 048
     Dates: start: 20141112, end: 20150416
  2. IMOVANE [Concomitant]
     Active Substance: ZOPICLONE
     Route: 048
     Dates: start: 20150319
  3. LEVEMIR [Concomitant]
     Active Substance: INSULIN DETEMIR
     Route: 058
     Dates: start: 20141209
  4. LEVOTHYROX [Concomitant]
     Active Substance: LEVOTHYROXINE
     Route: 048
     Dates: start: 20150211
  5. AMLODIPINE [Suspect]
     Active Substance: AMLODIPINE BESYLATE
     Indication: HYPERTENSION
     Dosage: 10 MG WITH UNKNOWN FREQUENCY, ARROW
     Route: 048
     Dates: start: 20150408
  6. TIAPRIDAL [Concomitant]
     Active Substance: TIAPRIDE HYDROCHLORIDE
     Route: 048
  7. BISOCE [Concomitant]
     Active Substance: BISOPROLOL
     Route: 048
     Dates: start: 20140117
  8. SMECTA [Concomitant]
     Active Substance: MONTMORILLONITE
     Route: 048
     Dates: start: 20150317
  9. DAFALGAN [Concomitant]
     Active Substance: ACETAMINOPHEN
     Route: 048
     Dates: start: 20150408
  10. ALPRAZOLAM. [Concomitant]
     Active Substance: ALPRAZOLAM
     Indication: ANXIETY
     Dosage: MERCK
     Route: 048
     Dates: start: 20150218
  11. CANDESARTAN [Concomitant]
     Active Substance: CANDESARTAN
     Dosage: ONE DF PER DAY, SANDOZ
     Route: 048
     Dates: start: 20150205
  12. NOVORAPID [Concomitant]
     Active Substance: INSULIN ASPART
     Route: 058
     Dates: start: 20130521

REACTIONS (7)
  - Meningism [Unknown]
  - Neuroleptic malignant syndrome [Recovered/Resolved]
  - Erythema [Unknown]
  - Face oedema [Unknown]
  - Herpes zoster [Unknown]
  - Localised oedema [Unknown]
  - Pain [Unknown]

NARRATIVE: CASE EVENT DATE: 20150414
